FAERS Safety Report 19027423 (Version 4)
Quarter: 2023Q1

REPORT INFORMATION
  Report Type: Spontaneous
  Country: US (occurrence: None)
  Receive Date: 20210319
  Receipt Date: 20230120
  Transmission Date: 20230418
  Serious: Yes (Hospitalization, Other)
  Sender: FDA-Public Use
  Company Number: 2021A132618

PATIENT
  Age: 60 Year
  Sex: Male
  Weight: 137 kg

DRUGS (107)
  1. FARXIGA [Suspect]
     Active Substance: DAPAGLIFLOZIN PROPANEDIOL
     Indication: Type 2 diabetes mellitus
     Route: 048
     Dates: start: 20180904, end: 20190717
  2. FARXIGA [Suspect]
     Active Substance: DAPAGLIFLOZIN PROPANEDIOL
     Indication: Weight decreased
     Route: 048
     Dates: start: 20180904, end: 20190717
  3. FARXIGA [Suspect]
     Active Substance: DAPAGLIFLOZIN PROPANEDIOL
     Indication: Blood pressure decreased
     Route: 048
     Dates: start: 20180904, end: 20190717
  4. FARXIGA [Suspect]
     Active Substance: DAPAGLIFLOZIN PROPANEDIOL
     Indication: Type 2 diabetes mellitus
     Dosage: 10.0MG UNKNOWN
     Route: 048
     Dates: start: 20180607
  5. FARXIGA [Suspect]
     Active Substance: DAPAGLIFLOZIN PROPANEDIOL
     Indication: Weight decreased
     Dosage: 10.0MG UNKNOWN
     Route: 048
     Dates: start: 20180607
  6. FARXIGA [Suspect]
     Active Substance: DAPAGLIFLOZIN PROPANEDIOL
     Indication: Blood pressure decreased
     Dosage: 10.0MG UNKNOWN
     Route: 048
     Dates: start: 20180607
  7. FARXIGA [Suspect]
     Active Substance: DAPAGLIFLOZIN PROPANEDIOL
     Indication: Type 2 diabetes mellitus
     Dosage: 10.0MG UNKNOWN
     Route: 048
     Dates: start: 20180703
  8. FARXIGA [Suspect]
     Active Substance: DAPAGLIFLOZIN PROPANEDIOL
     Indication: Weight decreased
     Dosage: 10.0MG UNKNOWN
     Route: 048
     Dates: start: 20180703
  9. FARXIGA [Suspect]
     Active Substance: DAPAGLIFLOZIN PROPANEDIOL
     Indication: Blood pressure decreased
     Dosage: 10.0MG UNKNOWN
     Route: 048
     Dates: start: 20180703
  10. FARXIGA [Suspect]
     Active Substance: DAPAGLIFLOZIN PROPANEDIOL
     Indication: Type 2 diabetes mellitus
     Dosage: 10.0MG UNKNOWN
     Route: 048
     Dates: start: 20180802
  11. FARXIGA [Suspect]
     Active Substance: DAPAGLIFLOZIN PROPANEDIOL
     Indication: Weight decreased
     Dosage: 10.0MG UNKNOWN
     Route: 048
     Dates: start: 20180802
  12. FARXIGA [Suspect]
     Active Substance: DAPAGLIFLOZIN PROPANEDIOL
     Indication: Blood pressure decreased
     Dosage: 10.0MG UNKNOWN
     Route: 048
     Dates: start: 20180802
  13. FARXIGA [Suspect]
     Active Substance: DAPAGLIFLOZIN PROPANEDIOL
     Indication: Type 2 diabetes mellitus
     Dosage: 10.0MG UNKNOWN
     Route: 048
     Dates: start: 20180904
  14. FARXIGA [Suspect]
     Active Substance: DAPAGLIFLOZIN PROPANEDIOL
     Indication: Weight decreased
     Dosage: 10.0MG UNKNOWN
     Route: 048
     Dates: start: 20180904
  15. FARXIGA [Suspect]
     Active Substance: DAPAGLIFLOZIN PROPANEDIOL
     Indication: Blood pressure decreased
     Dosage: 10.0MG UNKNOWN
     Route: 048
     Dates: start: 20180904
  16. FARXIGA [Suspect]
     Active Substance: DAPAGLIFLOZIN PROPANEDIOL
     Indication: Type 2 diabetes mellitus
     Dosage: 10.0MG UNKNOWN
     Route: 048
     Dates: start: 20181003
  17. FARXIGA [Suspect]
     Active Substance: DAPAGLIFLOZIN PROPANEDIOL
     Indication: Weight decreased
     Dosage: 10.0MG UNKNOWN
     Route: 048
     Dates: start: 20181003
  18. FARXIGA [Suspect]
     Active Substance: DAPAGLIFLOZIN PROPANEDIOL
     Indication: Blood pressure decreased
     Dosage: 10.0MG UNKNOWN
     Route: 048
     Dates: start: 20181003
  19. FARXIGA [Suspect]
     Active Substance: DAPAGLIFLOZIN PROPANEDIOL
     Indication: Type 2 diabetes mellitus
     Dosage: 10.0MG UNKNOWN
     Route: 048
     Dates: start: 20190102
  20. FARXIGA [Suspect]
     Active Substance: DAPAGLIFLOZIN PROPANEDIOL
     Indication: Weight decreased
     Dosage: 10.0MG UNKNOWN
     Route: 048
     Dates: start: 20190102
  21. FARXIGA [Suspect]
     Active Substance: DAPAGLIFLOZIN PROPANEDIOL
     Indication: Blood pressure decreased
     Dosage: 10.0MG UNKNOWN
     Route: 048
     Dates: start: 20190102
  22. FARXIGA [Suspect]
     Active Substance: DAPAGLIFLOZIN PROPANEDIOL
     Indication: Type 2 diabetes mellitus
     Dosage: 10.0MG UNKNOWN
     Route: 048
     Dates: start: 20190408
  23. FARXIGA [Suspect]
     Active Substance: DAPAGLIFLOZIN PROPANEDIOL
     Indication: Weight decreased
     Dosage: 10.0MG UNKNOWN
     Route: 048
     Dates: start: 20190408
  24. FARXIGA [Suspect]
     Active Substance: DAPAGLIFLOZIN PROPANEDIOL
     Indication: Blood pressure decreased
     Dosage: 10.0MG UNKNOWN
     Route: 048
     Dates: start: 20190408
  25. FARXIGA [Suspect]
     Active Substance: DAPAGLIFLOZIN PROPANEDIOL
     Indication: Type 2 diabetes mellitus
     Dosage: 10.0MG UNKNOWN
     Route: 048
     Dates: start: 20190717
  26. FARXIGA [Suspect]
     Active Substance: DAPAGLIFLOZIN PROPANEDIOL
     Indication: Weight decreased
     Dosage: 10.0MG UNKNOWN
     Route: 048
     Dates: start: 20190717
  27. FARXIGA [Suspect]
     Active Substance: DAPAGLIFLOZIN PROPANEDIOL
     Indication: Blood pressure decreased
     Dosage: 10.0MG UNKNOWN
     Route: 048
     Dates: start: 20190717
  28. FARXIGA [Suspect]
     Active Substance: DAPAGLIFLOZIN PROPANEDIOL
     Indication: Type 2 diabetes mellitus
     Dosage: 10.0MG UNKNOWN
     Route: 048
     Dates: end: 201910
  29. FARXIGA [Suspect]
     Active Substance: DAPAGLIFLOZIN PROPANEDIOL
     Indication: Weight decreased
     Dosage: 10.0MG UNKNOWN
     Route: 048
     Dates: end: 201910
  30. FARXIGA [Suspect]
     Active Substance: DAPAGLIFLOZIN PROPANEDIOL
     Indication: Blood pressure decreased
     Dosage: 10.0MG UNKNOWN
     Route: 048
     Dates: end: 201910
  31. PREDNISONE [Concomitant]
     Active Substance: PREDNISONE
     Indication: Inflammation
     Dosage: 50.0MG UNKNOWN
     Dates: start: 2018, end: 2021
  32. PRAMIPEXOLE [Concomitant]
     Active Substance: PRAMIPEXOLE
  33. PENICILLIN [Concomitant]
     Active Substance: PENICILLIN
  34. VITAMIN D3 [Concomitant]
     Active Substance: CHOLECALCIFEROL
  35. TESTOSTERONE [Concomitant]
     Active Substance: TESTOSTERONE
     Indication: Hormone therapy
     Dates: start: 2020, end: 2021
  36. KETOCONAZOLE [Concomitant]
     Active Substance: KETOCONAZOLE
  37. METOPROLOL [Concomitant]
     Active Substance: METOPROLOL
     Indication: Cardiac failure
     Dates: start: 2020, end: 2021
  38. TOBRADEX [Concomitant]
     Active Substance: DEXAMETHASONE\TOBRAMYCIN
  39. BUPROPION [Concomitant]
     Active Substance: BUPROPION
     Indication: Depression
     Dates: start: 2020, end: 2021
  40. MUCINEX [Concomitant]
     Active Substance: GUAIFENESIN
     Indication: Sinusitis
     Dosage: 2.0ML UNKNOWN
     Dates: start: 2020, end: 2021
  41. SPIRIVA [Concomitant]
     Active Substance: TIOTROPIUM BROMIDE MONOHYDRATE
     Indication: Asthma
     Dosage: 100.0MG UNKNOWN
     Dates: start: 2020, end: 2021
  42. NOVOLOG [Concomitant]
     Active Substance: INSULIN ASPART
     Indication: Diabetes mellitus
     Dosage: 2 UNITS
     Dates: start: 2019, end: 2021
  43. FLOMAX [Concomitant]
     Active Substance: TAMSULOSIN HYDROCHLORIDE
  44. FISH OIL [Concomitant]
     Active Substance: FISH OIL
     Indication: Amnesia
     Dosage: 500 UNITS
     Dates: start: 2020, end: 2021
  45. PANTOPRAZOLE [Concomitant]
     Active Substance: PANTOPRAZOLE
  46. IBUPROFEN [Concomitant]
     Active Substance: IBUPROFEN
     Dates: start: 2020, end: 2021
  47. SYMBICORT [Concomitant]
     Active Substance: BUDESONIDE\FORMOTEROL FUMARATE DIHYDRATE
     Indication: Asthma
     Dosage: 15.0MG UNKNOWN
     Dates: start: 2020, end: 2021
  48. FUROSEMIDE [Concomitant]
     Active Substance: FUROSEMIDE
     Indication: Cardiac failure
     Dates: start: 2020, end: 2021
  49. MIRALAX [Concomitant]
     Active Substance: POLYETHYLENE GLYCOL 3350
  50. SENNA [Concomitant]
     Active Substance: SENNA LEAF\SENNOSIDES\SENNOSIDES A AND B
  51. LACTULOSE [Concomitant]
     Active Substance: LACTULOSE
  52. VENLAFAXINE [Concomitant]
     Active Substance: VENLAFAXINE HYDROCHLORIDE
  53. CYCLOBENZAPRINE [Concomitant]
     Active Substance: CYCLOBENZAPRINE
  54. ACCOLATE [Concomitant]
     Active Substance: ZAFIRLUKAST
  55. AZITHROMYCIN [Concomitant]
     Active Substance: AZITHROMYCIN
  56. CIPROFLOXACIN [Concomitant]
     Active Substance: CIPROFLOXACIN
  57. XOPENEX [Concomitant]
     Active Substance: LEVALBUTEROL HYDROCHLORIDE
  58. ALBUTEROL [Concomitant]
     Active Substance: ALBUTEROL
     Indication: Asthma
     Dates: start: 2020, end: 2021
  59. BUDESONIDE [Concomitant]
     Active Substance: BUDESONIDE
  60. DOXYCYCLINE [Concomitant]
     Active Substance: DOXYCYCLINE
  61. CYMBALTA [Concomitant]
     Active Substance: DULOXETINE HYDROCHLORIDE
  62. METFORMIN [Concomitant]
     Active Substance: METFORMIN HYDROCHLORIDE
  63. CLINDAMYCIN [Concomitant]
     Active Substance: CLINDAMYCIN
  64. ZOSYN [Concomitant]
     Active Substance: PIPERACILLIN SODIUM\TAZOBACTAM SODIUM
  65. LACTOBACILLUS ACIDOPHILUS [Concomitant]
     Active Substance: LACTOBACILLUS ACIDOPHILUS
  66. MORPHINE [Concomitant]
     Active Substance: MORPHINE
  67. CEPHALEXIN [Concomitant]
     Active Substance: CEPHALEXIN
  68. SULFAMETHOXAZOLE [Concomitant]
     Active Substance: SULFAMETHOXAZOLE
  69. XYZAL [Concomitant]
     Active Substance: LEVOCETIRIZINE DIHYDROCHLORIDE
  70. NYSTATIN [Concomitant]
     Active Substance: NYSTATIN
  71. ACETYLCYSTEINE [Concomitant]
     Active Substance: ACETYLCYSTEINE
  72. BENZONATATE [Concomitant]
     Active Substance: BENZONATATE
  73. KETOROLAC [Concomitant]
     Active Substance: KETOROLAC TROMETHAMINE
  74. FERROUS SULFATE [Concomitant]
     Active Substance: FERROUS SULFATE
  75. TIOTROPIUM BROMIDE/FORMOTEROL FUMARATE/CICLESONIDE [Concomitant]
  76. SPIRONOLACTONE [Concomitant]
     Active Substance: SPIRONOLACTONE
     Indication: Cardiac failure
     Dosage: 200.0G UNKNOWN
     Dates: start: 2020, end: 2021
  77. NEXIUM [Concomitant]
     Active Substance: ESOMEPRAZOLE MAGNESIUM
  78. LEVOFLOXACIN [Concomitant]
     Active Substance: LEVOFLOXACIN
     Indication: Infection
     Dates: start: 2018, end: 2021
  79. INCRUSE ELLIPTA [Concomitant]
     Active Substance: UMECLIDINIUM BROMIDE
     Indication: Asthma
     Dates: start: 2021
  80. OXYCODONE [Concomitant]
     Active Substance: OXYCODONE
  81. VANCOMYCIN [Concomitant]
     Active Substance: VANCOMYCIN
  82. WELLBUTRIN [Concomitant]
     Active Substance: BUPROPION HYDROCHLORIDE
  83. MEPRON [Concomitant]
     Active Substance: ATOVAQUONE
  84. DULCOLAX NOS [Concomitant]
     Active Substance: BISACODYL OR DOCUSATE SODIUM
  85. LOVENOX [Concomitant]
     Active Substance: ENOXAPARIN SODIUM
  86. REGLAN [Concomitant]
     Active Substance: METOCLOPRAMIDE HYDROCHLORIDE
  87. TYLENOL [Concomitant]
     Active Substance: ACETAMINOPHEN
  88. PREFORMIST [Concomitant]
     Indication: Asthma
     Dates: start: 2018, end: 2019
  89. ACIDOPHILUS [Concomitant]
     Active Substance: LACTOBACILLUS ACIDOPHILUS
     Indication: Dyspepsia
     Dates: start: 2020, end: 2021
  90. B D PEN [Concomitant]
     Indication: Blood glucose abnormal
     Dates: start: 2019, end: 2021
  91. DIALYVITE [Concomitant]
     Active Substance: ASCORBIC ACID\BIOTIN\CALCIUM PANTOTHENATE\COBALAMIN\FOLIC ACID\NIACINAMIDE\PYRIDOXINE HYDROCHLORIDE\
     Indication: Vitamin A abnormal
     Dates: start: 2020, end: 2021
  92. MINERALS NOS/FOLIC ACID/FERROUS FUMARATE/VITAMINS NOS [Concomitant]
     Indication: Anaemia
     Dates: start: 2020, end: 2021
  93. HUMALOG [Concomitant]
     Active Substance: INSULIN LISPRO
     Indication: Diabetes mellitus
     Dosage: 10-100 UNITS
     Dates: start: 2019
  94. IPRATROPIUM [Concomitant]
     Active Substance: IPRATROPIUM
     Indication: Asthma
     Dates: start: 2020, end: 2020
  95. LEVEMIR [Concomitant]
     Active Substance: INSULIN DETEMIR
     Indication: Diabetes mellitus
     Dates: start: 2020
  96. ESCIN/LEVOTHYROXINE [Concomitant]
     Indication: Infectious thyroiditis
     Dates: start: 2020
  97. MONTELUKAST [Concomitant]
     Active Substance: MONTELUKAST SODIUM
     Indication: Asthma
     Dates: start: 2020, end: 2021
  98. NAC [Concomitant]
     Indication: Poisoning
     Dates: start: 2020, end: 2021
  99. DEVICE [Concomitant]
     Active Substance: DEVICE
     Indication: Asthma
     Dates: start: 2018, end: 2021
  100. DEXTROSE [Concomitant]
     Active Substance: DEXTROSE
     Indication: Diabetes mellitus
     Dates: start: 2019, end: 2021
  101. OXYCONTIN [Concomitant]
     Active Substance: OXYCODONE HYDROCHLORIDE
     Indication: Pain
     Dates: start: 2020, end: 2021
  102. PANTOPRAZOLE [Concomitant]
     Active Substance: PANTOPRAZOLE
     Indication: Dyspepsia
     Dosage: 10.0MG UNKNOWN
     Dates: start: 2020
  103. PRAMIPEXOLE [Concomitant]
     Active Substance: PRAMIPEXOLE
     Indication: Parkinson^s disease
     Dates: start: 2020
  104. TAMSULOSIN [Concomitant]
     Active Substance: TAMSULOSIN
     Indication: Nephrolithiasis
     Dates: start: 2020, end: 2021
  105. TOBRAMYCIN [Concomitant]
     Active Substance: TOBRAMYCIN
     Indication: Infectious thyroiditis
     Dates: start: 2020
  106. UNIFINE PEN TIP [Concomitant]
     Indication: Cardiac failure
     Dates: start: 2020
  107. METFORMIN [Concomitant]
     Active Substance: METFORMIN HYDROCHLORIDE
     Dates: start: 2018, end: 2019

REACTIONS (12)
  - Fournier^s gangrene [Unknown]
  - Scrotal cellulitis [Unknown]
  - Perirectal abscess [Unknown]
  - Pelvic abscess [Unknown]
  - Colonic abscess [Unknown]
  - Rectal abscess [Unknown]
  - Scrotal gangrene [Unknown]
  - Septic shock [Unknown]
  - Genital abscess [Unknown]
  - Anal abscess [Unknown]
  - Sepsis [Unknown]
  - Scrotal abscess [Unknown]

NARRATIVE: CASE EVENT DATE: 20190101
